FAERS Safety Report 5244271-0 (Version None)
Quarter: 2007Q1

REPORT INFORMATION
  Report Type: 
  Country: None (occurrence: None)
  Receive Date: 20070222
  Receipt Date: 20070214
  Transmission Date: 20070707
  Serious: Yes (Other)
  Sender: FDA-Public Use
  Company Number: 2006AP03527

PATIENT
  Age: 57 Year
  Sex: Female

DRUGS (6)
  1. ARIMIDEX [Suspect]
     Indication: BREAST CANCER
     Route: 048
     Dates: start: 20050413, end: 20050830
  2. CONIEL [Concomitant]
     Route: 048
  3. ALSIODOL [Concomitant]
     Route: 048
  4. FLUOROURACIL [Concomitant]
     Dosage: SIX COURSES
  5. EPIRUBICIN [Concomitant]
     Dosage: SIX COURSES
  6. CYCLOPHOSPHAMIDE [Concomitant]
     Dosage: SIX COURSES

REACTIONS (1)
  - UTERINE CANCER [None]
